FAERS Safety Report 8104682-2 (Version None)
Quarter: 2012Q1

REPORT INFORMATION
  Report Type: 
  Country: None (occurrence: None)
  Receive Date: 20120201
  Receipt Date: 20120127
  Transmission Date: 20120608
  Serious: Yes (Hospitalization)
  Sender: FDA-Public Use
  Company Number: US-PFIZER INC-2011281076

PATIENT
  Sex: Male
  Weight: 89.8 kg

DRUGS (7)
  1. ZYRTEC [Concomitant]
  2. CIALIS [Concomitant]
  3. DOXORUBICIN HCL [Suspect]
     Indication: SARCOMA
     Dosage: 155 MG, UNK
     Dates: start: 20111019, end: 20111019
  4. CALCIUM [Concomitant]
  5. DEXAMETHASONE [Concomitant]
     Dosage: UNK
     Dates: start: 20111019
  6. NEULASTA [Concomitant]
     Dosage: UNK
     Dates: start: 20111021, end: 20111116
  7. AVELOX [Concomitant]

REACTIONS (3)
  - THROMBOCYTOPENIA [None]
  - CELLULITIS [None]
  - NEUTROPENIA [None]
